FAERS Safety Report 18585808 (Version 4)
Quarter: 2021Q1

REPORT INFORMATION
  Report Type: Spontaneous
  Country: JP (occurrence: JP)
  Receive Date: 20201207
  Receipt Date: 20210107
  Transmission Date: 20210419
  Serious: Yes (Hospitalization, Other)
  Sender: FDA-Public Use
  Company Number: JP-PFIZER INC-2020480367

PATIENT
  Age: 76 Year
  Sex: Female

DRUGS (4)
  1. CELECOX [Suspect]
     Active Substance: CELECOXIB
     Indication: RHEUMATOID ARTHRITIS
     Dosage: 400 MG, DAILY
     Route: 048
  2. FOLIAMIN [Concomitant]
     Active Substance: FOLIC ACID
     Indication: RHEUMATOID ARTHRITIS
     Dosage: 5 MG, DAILY
     Route: 048
     Dates: start: 201110
  3. METHOTREXATE SODIUM. [Interacting]
     Active Substance: METHOTREXATE SODIUM
     Indication: RHEUMATOID ARTHRITIS
     Dosage: 6 MG, DAILY
     Route: 048
     Dates: start: 201110, end: 2011
  4. METHOTREXATE SODIUM. [Interacting]
     Active Substance: METHOTREXATE SODIUM
     Dosage: 8 MG, DAILY
     Route: 048
     Dates: start: 201112

REACTIONS (11)
  - Rash [Unknown]
  - Genital ulceration [Unknown]
  - Viral infection [Unknown]
  - Oral pain [Unknown]
  - Agranulocytosis [Unknown]
  - Mouth haemorrhage [Unknown]
  - Pustule [Unknown]
  - Mucocutaneous disorder [Unknown]
  - Drug interaction [Recovered/Resolved]
  - Pyelonephritis acute [Unknown]
  - Pyrexia [Unknown]

NARRATIVE: CASE EVENT DATE: 201503
